FAERS Safety Report 11458081 (Version 2)
Quarter: 2015Q3

REPORT INFORMATION
  Report Type: Spontaneous
  Country: US (occurrence: None)
  Receive Date: 20150904
  Receipt Date: 20150916
  Transmission Date: 20151125
  Serious: Yes (Life-Threatening, Hospitalization, Other)
  Sender: FDA-Public Use
  Company Number: US-MDT-ADR-2015-01703

PATIENT
  Age: 55 Year
  Sex: Female

DRUGS (2)
  1. MORPHINE INTRATHECAL [Suspect]
     Active Substance: MORPHINE
  2. BACLOFEN INTRATHECAL [Suspect]
     Active Substance: BACLOFEN

REACTIONS (10)
  - Performance status decreased [None]
  - Cerebrospinal fluid leakage [None]
  - Adverse drug reaction [None]
  - General physical health deterioration [None]
  - Abnormal behaviour [None]
  - Drug dependence [None]
  - Drug withdrawal syndrome [None]
  - Fall [None]
  - Spinal column stenosis [None]
  - Morbid thoughts [None]
